FAERS Safety Report 4338263-3 (Version None)
Quarter: 2004Q2

REPORT INFORMATION
  Report Type: 
  Country: None (occurrence: None)
  Receive Date: 20040409
  Receipt Date: 20040328
  Transmission Date: 20050107
  Serious: No
  Sender: FDA-Public Use
  Company Number: 04P-229-0252883-00

PATIENT
  Age: 25 Year
  Sex: Male

DRUGS (3)
  1. BIAXIN [Suspect]
     Indication: BACTERIAL INFECTION
     Dosage: 100 MG DAILY OR 500 MG TWICE  A DAY
     Dates: start: 20031229, end: 20040105
  2. PANTOPRAZOLE SODIUM [Suspect]
     Indication: BACTERIAL INFECTION
     Dosage: 80 MG, 1 IN 1 D, PER ORAL
     Route: 048
     Dates: start: 20031229, end: 20040105
  3. AMOXICILLIN TRIHYDRATE [Suspect]
     Indication: BACTERIAL INFECTION
     Dosage: 2 GM, 1 IN 1 D, PER ORAL
     Route: 048
     Dates: start: 20031229, end: 20040105

REACTIONS (2)
  - DEPRESSION [None]
  - SUICIDE ATTEMPT [None]
